FAERS Safety Report 13726514 (Version 3)
Quarter: 2017Q4

REPORT INFORMATION
  Report Type: Spontaneous
  Country: AE (occurrence: AE)
  Receive Date: 20170706
  Receipt Date: 20171123
  Transmission Date: 20180320
  Serious: Yes (Hospitalization, Other)
  Sender: FDA-Public Use
  Company Number: AE-ABBVIE-17P-166-2030651-00

PATIENT
  Age: 20 Month
  Sex: Male

DRUGS (3)
  1. KEPPRA [Concomitant]
     Active Substance: LEVETIRACETAM
     Indication: PRODUCT USED FOR UNKNOWN INDICATION
     Route: 065
     Dates: start: 201706
  2. DEPAKINE [Suspect]
     Active Substance: VALPROATE SODIUM
     Indication: SEIZURE
     Route: 048
     Dates: start: 201703, end: 201710
  3. DEPAKINE [Suspect]
     Active Substance: VALPROATE SODIUM
     Indication: EPILEPSY

REACTIONS (15)
  - Hemiparesis [Unknown]
  - General physical health deterioration [Unknown]
  - Snoring [Unknown]
  - Muscle disorder [Unknown]
  - Eye movement disorder [Unknown]
  - Dyspnoea [Unknown]
  - Skin exfoliation [Unknown]
  - Somnolence [Unknown]
  - Myoclonus [Unknown]
  - Epilepsy [Unknown]
  - Dyskinesia [Unknown]
  - Paralysis [Unknown]
  - Pyrexia [Unknown]
  - Dysphagia [Unknown]
  - Burning sensation [Unknown]

NARRATIVE: CASE EVENT DATE: 2017
